FAERS Safety Report 15708791 (Version 4)
Quarter: 2018Q4

REPORT INFORMATION
  Report Type: Spontaneous
  Country: JP (occurrence: JP)
  Receive Date: 20181211
  Receipt Date: 20181224
  Transmission Date: 20190205
  Serious: Yes (Death)
  Sender: FDA-Public Use
  Company Number: JP-ROCHE-2228162

PATIENT
  Age: 61 Year
  Sex: Male

DRUGS (2)
  1. OXALIPLATIN. [Concomitant]
     Active Substance: OXALIPLATIN
     Indication: CARCINOID TUMOUR OF THE APPENDIX
     Route: 041
  2. XELODA [Suspect]
     Active Substance: CAPECITABINE
     Indication: CARCINOID TUMOUR OF THE APPENDIX
     Dosage: DOSAGE IS UNCERTAIN.
     Route: 048

REACTIONS (3)
  - Intentional product use issue [Unknown]
  - Carcinoid tumour of the appendix [Fatal]
  - Off label use [Unknown]
